FAERS Safety Report 4773895-X (Version None)
Quarter: 2005Q3

REPORT INFORMATION
  Report Type: 
  Country: None (occurrence: None)
  Receive Date: 20050919
  Receipt Date: 20050907
  Transmission Date: 20060218
  Serious: Yes (Hospitalization, Other)
  Sender: FDA-Public Use
  Company Number: USA-2005-0021014

PATIENT
  Age: 41 Year
  Sex: Female

DRUGS (3)
  1. OXYCONTIN [Suspect]
     Indication: PAIN
     Dosage: 160 MG, QID; 80 MG, QID
     Dates: start: 19960101
  2. OXYFAST CONCENTRATE 20 MG/DL (OXYCODONE HYDROCHLORIDE) [Concomitant]
  3. METOPROLOL TARTRATE [Concomitant]

REACTIONS (10)
  - ABDOMINAL PAIN UPPER [None]
  - CONVULSION [None]
  - DEHYDRATION [None]
  - DIARRHOEA [None]
  - DRUG DEPENDENCE [None]
  - DRUG WITHDRAWAL SYNDROME [None]
  - FEELING COLD [None]
  - FEELING HOT [None]
  - PAIN IN EXTREMITY [None]
  - VOMITING [None]
